FAERS Safety Report 23230144 (Version 1)
Quarter: 2023Q4

REPORT INFORMATION
  Report Type: Spontaneous
  Country: CN (occurrence: None)
  Receive Date: 20231127
  Receipt Date: 20231127
  Transmission Date: 20240110
  Serious: Yes (Death, Other)
  Sender: FDA-Public Use
  Company Number: CN-ROCHE-3459089

PATIENT

DRUGS (2)
  1. POLIVY [Suspect]
     Active Substance: POLATUZUMAB VEDOTIN-PIIQ
     Indication: Diffuse large B-cell lymphoma
     Dosage: DAY 1, FOR CYCLE 1~6
     Route: 041
  2. MOSUNETUZUMAB [Suspect]
     Active Substance: MOSUNETUZUMAB
     Indication: Diffuse large B-cell lymphoma
     Dosage: (5/15/45 MG OR 5/45/45 MG) ON DAY 1/8/15 OF CYCLE 1 AND 45 MG, DAY 1 OF CYCLE 2-8
     Route: 058

REACTIONS (10)
  - Neutropenia [Unknown]
  - Cytokine release syndrome [Unknown]
  - COVID-19 pneumonia [Fatal]
  - COVID-19 [Fatal]
  - Staphylococcal bacteraemia [Fatal]
  - Sepsis [Fatal]
  - Pneumonia [Fatal]
  - Pulmonary embolism [Fatal]
  - Completed suicide [Fatal]
  - Injection site reaction [Unknown]
